FAERS Safety Report 4616159-7 (Version None)
Quarter: 2005Q1

REPORT INFORMATION
  Report Type: 
  Country: None (occurrence: None)
  Receive Date: 20050323
  Receipt Date: 20050308
  Transmission Date: 20050727
  Serious: Yes (Death)
  Sender: FDA-Public Use
  Company Number: JP-BOEHRINGER INGELHEIM PHARMMACEUTICALS, INC.-2005-BP-03687NB

PATIENT
  Age: 80 Year
  Sex: Male

DRUGS (15)
  1. SPIRIVA [Suspect]
     Indication: CHRONIC OBSTRUCTIVE PULMONARY DISEASE
     Route: 055
  2. SPIROPENT [Suspect]
     Indication: ASTHMA
     Route: 048
  3. THEOLONG [Concomitant]
     Route: 048
  4. NITOROL [Concomitant]
     Route: 048
  5. ASPIRIN [Concomitant]
     Route: 048
  6. FUROSEMIDE [Concomitant]
     Route: 048
  7. NU-LOTAN [Concomitant]
     Route: 048
  8. SPIRONOLACTONE [Concomitant]
     Route: 048
  9. ROKUMI-GAN [Concomitant]
     Route: 048
  10. CLARITH [Concomitant]
     Route: 048
  11. SENNOSIDE [Concomitant]
     Route: 048
  12. PREDNISOLONE [Concomitant]
     Route: 048
  13. TAIHO [Concomitant]
     Route: 062
  14. TULOBUTEROL [Concomitant]
     Route: 062
  15. FLUTICASONE PROPIONATE [Concomitant]
     Route: 055

REACTIONS (1)
  - VENTRICULAR FIBRILLATION [None]
